FAERS Safety Report 7531743-9 (Version None)
Quarter: 2011Q2

REPORT INFORMATION
  Report Type: 
  Country: None (occurrence: None)
  Receive Date: 20110608
  Receipt Date: 20110525
  Transmission Date: 20111010
  Serious: Yes (Hospitalization)
  Sender: FDA-Public Use
  Company Number: US-SHIRE-ALL1-2011-01608

PATIENT
  Age: 21 Year
  Sex: Female
  Weight: 108.84 kg

DRUGS (4)
  1. WELLBUTRIN [Concomitant]
     Indication: AFFECTIVE DISORDER
     Dosage: 100 MG, 1X/DAY:QD
     Route: 048
     Dates: end: 20110401
  2. LAMICTAL [Suspect]
     Indication: AFFECTIVE DISORDER
     Dosage: 200 MG, 1X/DAY:QD
     Route: 048
     Dates: start: 20101201, end: 20110401
  3. VYVANSE [Suspect]
     Indication: ATTENTION DEFICIT/HYPERACTIVITY DISORDER
     Dosage: 50 MG, 1X/DAY:QD
     Route: 048
     Dates: start: 20100901
  4. STRATTERA [Concomitant]
     Indication: ATTENTION DEFICIT/HYPERACTIVITY DISORDER
     Dosage: 80 MG, 1X/DAY:QD
     Route: 048

REACTIONS (8)
  - AUTOIMMUNE DISORDER [None]
  - PYREXIA [None]
  - VASCULITIS [None]
  - OEDEMA PERIPHERAL [None]
  - DRUG INTERACTION [None]
  - ERYTHEMA [None]
  - URTICARIA [None]
  - DRUG HYPERSENSITIVITY [None]
